FAERS Safety Report 9847079 (Version 1)
Quarter: 2014Q1

REPORT INFORMATION
  Report Type: Spontaneous
  Country: DE (occurrence: DE)
  Receive Date: 20140127
  Receipt Date: 20140127
  Transmission Date: 20141002
  Serious: Yes (Congenital Anomaly, Other)
  Sender: FDA-Public Use
  Company Number: DE-PFIZER INC-2014019031

PATIENT
  Sex: 0

DRUGS (2)
  1. VENLAFAXINE HCL [Suspect]
     Indication: DEPRESSION
     Dosage: 300 MG, DAILY, 0 - 8 PLUS 2 GESTATIONAL WEEK
     Route: 064
     Dates: start: 20101212, end: 20110208
  2. FEMIBION [Concomitant]
     Indication: PROPHYLAXIS OF NEURAL TUBE DEFECT
     Dosage: 0.8 MG, DAILY, 6 PLUS 1 - 12 PLUS 5 GESTATIONAL WEEK
     Route: 064
     Dates: start: 20110124, end: 20110311

REACTIONS (6)
  - Maternal exposure during pregnancy [Not Recovered/Not Resolved]
  - Atrioventricular septal defect [Not Recovered/Not Resolved]
  - Hydrops foetalis [Not Recovered/Not Resolved]
  - Foetal malformation [Unknown]
  - Ultrasound antenatal screen [Unknown]
  - Congenital nose malformation [Unknown]
